FAERS Safety Report 4553759-7 (Version None)
Quarter: 2005Q1

REPORT INFORMATION
  Report Type: 
  Country: None (occurrence: None)
  Receive Date: 20050113
  Receipt Date: 20050113
  Transmission Date: 20050727
  Serious: Yes (Hospitalization, Other)
  Sender: FDA-Public Use
  Company Number: None

PATIENT
  Age: 81 Year
  Sex: Male
  Weight: 96.1626 kg

DRUGS (2)
  1. MAALOX TOTAL STRENGTH MFD BY NOVARTIS CONSUMER HEALTH INC [Suspect]
     Indication: GASTRIC DISORDER
     Dosage: 2 TABLESPOONS 12 NOON AND 4 PM ; 2 TABLESPOONS
     Dates: start: 20040910
  2. MAALOX TOTAL STRENGTH MFD BY NOVARTIS CONSUMER HEALTH INC [Suspect]
     Indication: GASTRIC DISORDER
     Dosage: 2 TABLESPOONS 12 NOON AND 4 PM ; 2 TABLESPOONS
     Dates: start: 20040911

REACTIONS (3)
  - FAECES DISCOLOURED [None]
  - HAEMATOCHEZIA [None]
  - PHARMACEUTICAL PRODUCT COMPLAINT [None]
